FAERS Safety Report 4573919-9 (Version None)
Quarter: 2005Q1

REPORT INFORMATION
  Report Type: 
  Country: None (occurrence: None)
  Receive Date: 20050203
  Receipt Date: 20050131
  Transmission Date: 20050727
  Serious: Yes (Death, Hospitalization, Other)
  Sender: FDA-Public Use
  Company Number: TCI2005A00035

PATIENT
  Age: 70 Year
  Sex: Male

DRUGS (10)
  1. ACTOS [Suspect]
     Indication: DIABETES MELLITUS
     Dosage: 30 MG (30 MG 1 D)
     Route: 048
     Dates: start: 20010101, end: 20041130
  2. NICARDIPINE HCL [Concomitant]
  3. ALDOMET [Concomitant]
  4. EBRANTIL   (URAPIDIL) [Concomitant]
  5. ACECOL            (TEMOCAPRIL HYDROCHLORIDE) [Concomitant]
  6. MAINROL                (BISOPROLOL FUMARATE) [Concomitant]
  7. BEZATOL SR       (BEZAFIBRATE) [Concomitant]
  8. CILOS               MERCK           (CILOSTAZOL) [Concomitant]
  9. FLUITRAN         (TRICHLORMETHAZIDE) [Concomitant]
  10. ANTIPSYCHOTICS [Concomitant]

REACTIONS (13)
  - ANAEMIA [None]
  - ATRIAL FIBRILLATION [None]
  - AZOTAEMIA [None]
  - CARDIAC FAILURE [None]
  - CONDITION AGGRAVATED [None]
  - DIABETIC NEPHROPATHY [None]
  - IRON DEFICIENCY ANAEMIA [None]
  - NEPHROGENIC ANAEMIA [None]
  - OEDEMA [None]
  - PNEUMONIA [None]
  - RENAL FAILURE ACUTE [None]
  - TACHYCARDIA [None]
  - WEIGHT DECREASED [None]
